FAERS Safety Report 25183102 (Version 1)
Quarter: 2025Q2

REPORT INFORMATION
  Report Type: Spontaneous
  Country: FR (occurrence: FR)
  Receive Date: 20250410
  Receipt Date: 20250410
  Transmission Date: 20250716
  Serious: Yes (Hospitalization)
  Sender: MYLAN
  Company Number: FR-MYLANLABS-2025M1030502

PATIENT
  Age: 5 Year
  Sex: Female

DRUGS (4)
  1. VALPROATE [Suspect]
     Active Substance: VALPROIC ACID
     Indication: Intellectual disability
  2. VALPROATE [Suspect]
     Active Substance: VALPROIC ACID
     Indication: CDKL5 deficiency disorder
  3. CANNABIDIOL [Suspect]
     Active Substance: CANNABIDIOL
     Indication: Intellectual disability
     Dosage: 0.010 MILLIGRAM, QD
  4. CANNABIDIOL [Suspect]
     Active Substance: CANNABIDIOL
     Indication: CDKL5 deficiency disorder

REACTIONS (1)
  - Drug ineffective [Unknown]
